FAERS Safety Report 7295937-2 (Version None)
Quarter: 2011Q1

REPORT INFORMATION
  Report Type: 
  Country: None (occurrence: None)
  Receive Date: 20110216
  Receipt Date: 20110111
  Transmission Date: 20110831
  Serious: No
  Sender: FDA-Public Use
  Company Number: US-ABBOTT-11P-163-0696896-00

PATIENT
  Sex: Male
  Weight: 78.996 kg

DRUGS (3)
  1. PLAVIX [Concomitant]
     Indication: CORONARY ARTERIAL STENT INSERTION
  2. SIMCOR [Suspect]
     Indication: CORONARY ARTERIAL STENT INSERTION
     Dosage: 500/40 MG
     Route: 048
     Dates: start: 20110103
  3. ATENOLOL [Concomitant]
     Indication: CARDIAC DISORDER

REACTIONS (3)
  - PARAESTHESIA [None]
  - HOT FLUSH [None]
  - NASAL CONGESTION [None]
